FAERS Safety Report 8496955-9 (Version None)
Quarter: 2012Q3

REPORT INFORMATION
  Report Type: 
  Country: None (occurrence: None)
  Receive Date: 20120709
  Receipt Date: 20120605
  Transmission Date: 20120928
  Serious: No
  Sender: FDA-Public Use
  Company Number: US-AMGEN-USASP2010001283

PATIENT
  Age: 38 Year
  Sex: Female

DRUGS (7)
  1. CLARITIN                           /00413701/ [Concomitant]
     Dosage: UNK UNK, QD
  2. METHOCARBAMOL [Concomitant]
     Dosage: UNK UNK, QD
  3. ENBREL [Suspect]
     Indication: RHEUMATOID ARTHRITIS
     Route: 058
     Dates: start: 20100720
  4. ACIPHEX [Concomitant]
     Dosage: 60 MG, QD
  5. XYZAL [Concomitant]
     Dosage: UNK UNK, QD
  6. MEDROL [Concomitant]
     Dosage: 4 MG, UNK
  7. BIOTIN [Concomitant]

REACTIONS (8)
  - JOINT EFFUSION [None]
  - MONOCYTE COUNT ABNORMAL [None]
  - BLOOD GLUCOSE ABNORMAL [None]
  - URTICARIA [None]
  - ROTATOR CUFF SYNDROME [None]
  - ARTHRALGIA [None]
  - MEAN CELL VOLUME ABNORMAL [None]
  - NEUTROPHIL COUNT ABNORMAL [None]
